FAERS Safety Report 5919069-8 (Version None)
Quarter: 2008Q4

REPORT INFORMATION
  Report Type: 
  Country: None (occurrence: None)
  Receive Date: 20081014
  Receipt Date: 20081014
  Transmission Date: 20090506
  Serious: Yes (Hospitalization)
  Sender: FDA-Public Use
  Company Number: None

PATIENT
  Age: 66 Year
  Sex: Male
  Weight: 90.8 kg

DRUGS (12)
  1. BEVACIZUMAB (GENENTECH, INC.) [Suspect]
     Indication: GLIOBLASTOMA MULTIFORME
     Dosage: 908MG Q2WKS IV
     Route: 042
     Dates: start: 20080814
  2. BEVACIZUMAB (GENENTECH, INC.) [Suspect]
     Indication: GLIOBLASTOMA MULTIFORME
     Dosage: 908MG Q2WKS IV
     Route: 042
     Dates: start: 20080828
  3. TEMOZOLOMIDE (SCHERING-PLOUGH RESEARCH) [Suspect]
     Indication: GLIOBLASTOMA MULTIFORME
     Dosage: 430MG DAYS 1-5 PO
     Route: 048
     Dates: start: 20080814, end: 20080818
  4. ZESTRIL [Concomitant]
  5. PREVACID [Concomitant]
  6. CIPRO [Concomitant]
  7. AVODART [Concomitant]
  8. KEPPRA [Concomitant]
  9. DECADRON [Concomitant]
  10. LIPITOR [Concomitant]
  11. UROXATRAL [Concomitant]
  12. SINGULAIR [Concomitant]

REACTIONS (6)
  - ASTHENIA [None]
  - CITROBACTER INFECTION [None]
  - PATHOGEN RESISTANCE [None]
  - URINARY RETENTION [None]
  - URINARY TRACT INFECTION [None]
  - WHEELCHAIR USER [None]
